FAERS Safety Report 5768463-7 (Version None)
Quarter: 2008Q2

REPORT INFORMATION
  Report Type: 
  Country: None (occurrence: None)
  Receive Date: 20080610
  Receipt Date: 20080528
  Transmission Date: 20081010
  Serious: Yes (Hospitalization)
  Sender: FDA-Public Use
  Company Number: DSM-2008-00485

PATIENT
  Age: 59 Year
  Sex: Male
  Weight: 98 kg

DRUGS (1)
  1. OLMETEC HCTZ 20/12.5 (HYDROCHLOROTHIAZIDE, OLMESARTAN MEDOXOMIL) (TABL [Suspect]
     Indication: HYPERTENSION
     Dosage: 20/12.5 MG (1 IN 1 D), ORAL
     Route: 048
     Dates: start: 20080205, end: 20080415

REACTIONS (1)
  - CALCULUS URINARY [None]
